FAERS Safety Report 24812182 (Version 1)
Quarter: 2025Q1

REPORT INFORMATION
  Report Type: Spontaneous
  Country: US (occurrence: None)
  Receive Date: 20250106
  Receipt Date: 20250106
  Transmission Date: 20250409
  Serious: Yes (Hospitalization)
  Sender: FDA-CTU
  Company Number: None

PATIENT
  Age: 77 Year
  Sex: Female

DRUGS (2)
  1. MVASI [Suspect]
     Active Substance: BEVACIZUMAB-AWWB
     Dates: start: 20241111, end: 20241218
  2. MVASI [Concomitant]
     Active Substance: BEVACIZUMAB-AWWB
     Dates: start: 20241111, end: 20241218

REACTIONS (5)
  - Dyspnoea [None]
  - Cough [None]
  - Electrocardiogram ST segment elevation [None]
  - Acute myocardial infarction [None]
  - Cardiac failure congestive [None]

NARRATIVE: CASE EVENT DATE: 20241218
